FAERS Safety Report 18727979 (Version 1)
Quarter: 2021Q1

REPORT INFORMATION
  Report Type: Spontaneous
  Country: CN (occurrence: CN)
  Receive Date: 20210112
  Receipt Date: 20210112
  Transmission Date: 20210419
  Serious: Yes (Life-Threatening, Hospitalization, Other)
  Sender: FDA-Public Use
  Company Number: CN-009507513-2101CHN004209

PATIENT
  Age: 80 Year
  Sex: Female
  Weight: 60 kg

DRUGS (8)
  1. JANUVIA [Suspect]
     Active Substance: SITAGLIPTIN PHOSPHATE
     Dosage: 100MG, QD
     Route: 048
     Dates: start: 20200824, end: 20201221
  2. GLUCOBAY [Suspect]
     Active Substance: ACARBOSE
     Dosage: 100MG, TID
     Route: 048
     Dates: start: 20200824, end: 20201221
  3. GLUCOBAY [Suspect]
     Active Substance: ACARBOSE
     Indication: DIABETES MELLITUS
     Dosage: 100MG, TID
     Route: 048
     Dates: start: 20200824, end: 20201221
  4. FORXIGA [Suspect]
     Active Substance: DAPAGLIFLOZIN
     Indication: DIABETES MELLITUS
     Dosage: 10MG, QD
     Route: 048
     Dates: start: 20200824, end: 20201221
  5. GLIMEPIRIDE. [Suspect]
     Active Substance: GLIMEPIRIDE
     Indication: DIABETES MELLITUS
     Dosage: 4MG, BID
     Route: 048
     Dates: start: 20200824, end: 20201221
  6. GLIMEPIRIDE. [Suspect]
     Active Substance: GLIMEPIRIDE
     Dosage: 4MG, BID
     Route: 048
     Dates: start: 20200824, end: 20201221
  7. JANUVIA [Suspect]
     Active Substance: SITAGLIPTIN PHOSPHATE
     Indication: DIABETES MELLITUS
     Dosage: 100MG, QD
     Route: 048
     Dates: start: 20200824, end: 20201221
  8. FORXIGA [Suspect]
     Active Substance: DAPAGLIFLOZIN
     Dosage: 10MG, QD
     Route: 048
     Dates: start: 20200824, end: 20201221

REACTIONS (3)
  - Diabetes mellitus [Unknown]
  - Urinary incontinence [Recovering/Resolving]
  - Hypoglycaemic coma [Recovering/Resolving]

NARRATIVE: CASE EVENT DATE: 20201221
